FAERS Safety Report 9967356 (Version 2)
Quarter: 2014Q1

REPORT INFORMATION
  Report Type: Report from Study
  Country: US (occurrence: US)
  Receive Date: 20140305
  Receipt Date: 20140305
  Transmission Date: 20141002
  Serious: Yes (Hospitalization, Other)
  Sender: FDA-Public Use
  Company Number: US-ABBVIE-13P-163-1123829-00

PATIENT
  Age: 44 Year
  Sex: Male
  Weight: 92.16 kg

DRUGS (4)
  1. HUMIRA [Suspect]
     Indication: CROHN^S DISEASE
     Route: 058
     Dates: start: 20130610, end: 20130610
  2. PREVACID [Concomitant]
     Indication: PRODUCT USED FOR UNKNOWN INDICATION
  3. AZATHIOPRINE [Concomitant]
     Indication: CROHN^S DISEASE
     Route: 048
     Dates: start: 201212, end: 20130617
  4. BUDESONIDE [Concomitant]
     Indication: CROHN^S DISEASE
     Dates: start: 201304, end: 201305

REACTIONS (2)
  - Abscess intestinal [Recovered/Resolved]
  - Hepatic steatosis [Unknown]
